FAERS Safety Report 6029664-6 (Version None)
Quarter: 2009Q1

REPORT INFORMATION
  Report Type: 
  Country: None (occurrence: None)
  Receive Date: 20090107
  Receipt Date: 20081229
  Transmission Date: 20090719
  Serious: Yes (Hospitalization, Other)
  Sender: FDA-Public Use
  Company Number: US-JNJFOC-20081207117

PATIENT
  Sex: Female
  Weight: 56.7 kg

DRUGS (7)
  1. REMICADE [Suspect]
     Route: 042
  2. REMICADE [Suspect]
     Indication: CROHN'S DISEASE
     Route: 042
  3. VITAMIN B-12 [Concomitant]
     Indication: ANAEMIA
     Route: 050
  4. FOLGARD [Concomitant]
     Indication: DYSPEPSIA
  5. FOLGARD [Concomitant]
     Indication: BLOOD CALCIUM
     Dosage: 6-8 MONTHS
  6. AMBIEN [Concomitant]
     Indication: INSOMNIA
     Dosage: 2-3 YEARS
  7. ALPRAZOLAM [Concomitant]
     Indication: ANXIETY

REACTIONS (5)
  - IRON DEFICIENCY [None]
  - MASS [None]
  - PHARYNGITIS [None]
  - TOOTH DISORDER [None]
  - URINARY TRACT INFECTION [None]
